FAERS Safety Report 6284497-0 (Version None)
Quarter: 2009Q3

REPORT INFORMATION
  Report Type: 
  Country: None (occurrence: None)
  Receive Date: 20090727
  Receipt Date: 20090612
  Transmission Date: 20100115
  Serious: No
  Sender: FDA-Public Use
  Company Number: US-ALEXION-A200900476

PATIENT
  Sex: Male

DRUGS (5)
  1. SOLIRIS [Suspect]
     Indication: PAROXYSMAL NOCTURNAL HAEMOGLOBINURIA
     Dosage: 600 MG, QW X4
     Dates: start: 20080401, end: 20080422
  2. SOLIRIS [Suspect]
     Dosage: 900 MG, Q2W
     Route: 042
  3. FOLIC ACID [Concomitant]
     Route: 048
  4. MULTIVITAMIN                       /00831701/ [Concomitant]
     Route: 048
  5. VITAMIN B12                        /00056201/ [Concomitant]
     Dosage: 50 UG, QD
     Route: 048

REACTIONS (1)
  - ARTHRALGIA [None]
